FAERS Safety Report 7432785-4 (Version None)
Quarter: 2011Q2

REPORT INFORMATION
  Report Type: 
  Country: None (occurrence: None)
  Receive Date: 20110422
  Receipt Date: 20110420
  Transmission Date: 20111010
  Serious: Yes (Life-Threatening, Hospitalization)
  Sender: FDA-Public Use
  Company Number: B0714323A

PATIENT
  Sex: Female

DRUGS (5)
  1. KARDEGIC [Concomitant]
     Dosage: 1UNIT PER DAY
     Route: 048
     Dates: end: 20110226
  2. XANAX [Concomitant]
     Dosage: 1UNIT PER DAY
     Route: 048
     Dates: start: 20110202, end: 20110209
  3. EXELON [Suspect]
     Route: 062
     Dates: start: 20100517, end: 20110209
  4. CORDARONE [Concomitant]
     Dosage: 1UNIT PER DAY
     Route: 048
  5. LAMICTAL [Suspect]
     Route: 065
     Dates: start: 20100517

REACTIONS (6)
  - STATUS EPILEPTICUS [None]
  - COMA [None]
  - HYPERAMMONAEMIA [None]
  - FALL [None]
  - URINARY RETENTION [None]
  - SUBDURAL HAEMATOMA [None]
